FAERS Safety Report 18348061 (Version 1)
Quarter: 2020Q4

REPORT INFORMATION
  Report Type: Report from Study
  Country: DE (occurrence: DE)
  Receive Date: 20201006
  Receipt Date: 20201006
  Transmission Date: 20210114
  Serious: Yes (Death, Other)
  Sender: FDA-Public Use
  Company Number: DE-SA-2020SA273344

PATIENT

DRUGS (1)
  1. TERIFLUNOMIDE. [Suspect]
     Active Substance: TERIFLUNOMIDE
     Indication: RELAPSING-REMITTING MULTIPLE SCLEROSIS
     Dosage: STRENGTH: 14 MG

REACTIONS (1)
  - Bronchopulmonary aspergillosis [Fatal]
